FAERS Safety Report 12637833 (Version 2)
Quarter: 2016Q3

REPORT INFORMATION
  Report Type: Spontaneous
  Country: US (occurrence: US)
  Receive Date: 20160809
  Receipt Date: 20160825
  Transmission Date: 20161109
  Serious: No
  Sender: FDA-Public Use
  Company Number: US-PFIZER INC-2016144326

PATIENT
  Age: 62 Year
  Sex: Female
  Weight: 73.38 kg

DRUGS (2)
  1. XALKORI [Suspect]
     Active Substance: CRIZOTINIB
     Indication: PANCREATIC CARCINOMA
     Dosage: 250 MG, 2X/DAY
     Route: 048
     Dates: start: 201604
  2. XALKORI [Suspect]
     Active Substance: CRIZOTINIB
     Dosage: 250 MG, 2X/DAY
     Route: 048
     Dates: end: 20160717

REACTIONS (3)
  - Disease progression [Unknown]
  - Pancreatic carcinoma [Unknown]
  - Product use issue [Unknown]

NARRATIVE: CASE EVENT DATE: 201604
